FAERS Safety Report 5563552-4 (Version None)
Quarter: 2007Q4

REPORT INFORMATION
  Report Type: 
  Country: None (occurrence: None)
  Receive Date: 20071217
  Receipt Date: 20070706
  Transmission Date: 20080405
  Serious: No
  Sender: FDA-Public Use
  Company Number: US-ASTRAZENECA-2007UW15895

PATIENT
  Age: 70 Year
  Sex: Female

DRUGS (3)
  1. CRESTOR [Suspect]
     Route: 048
  2. ZETIA [Concomitant]
  3. OMACOR [Concomitant]
     Dosage: 2 TABLETS

REACTIONS (3)
  - AMNESIA [None]
  - BALANCE DISORDER [None]
  - DIZZINESS [None]
